FAERS Safety Report 5204133-1 (Version None)
Quarter: 2007Q1

REPORT INFORMATION
  Report Type: 
  Country: None (occurrence: None)
  Receive Date: 20070110
  Receipt Date: 20051209
  Transmission Date: 20070707
  Serious: Yes (Life-Threatening)
  Sender: FDA-Public Use
  Company Number: US-BRISTOL-MYERS SQUIBB COMPANY-13209713

PATIENT
  Age: 37 Year
  Sex: Male

DRUGS (8)
  1. ABILIFY [Suspect]
     Indication: SUICIDAL IDEATION
     Dosage: ABILIFY:TITRATE TO 20MG QD 9/29-10/04/2005; D/C 10/6 TO 10/8;RESTART ON 10/8 10MG QD + UP TO 15MG QD
     Route: 048
  2. ABILIFY [Suspect]
     Indication: MOOD ALTERED
     Dosage: ABILIFY:TITRATE TO 20MG QD 9/29-10/04/2005; D/C 10/6 TO 10/8;RESTART ON 10/8 10MG QD + UP TO 15MG QD
     Route: 048
  3. VALPROIC ACID [Concomitant]
  4. ADVAIR DISKUS 100/50 [Concomitant]
     Dosage: 250/50
  5. DIAMOX [Concomitant]
  6. ATIVAN [Concomitant]
     Dosage: AT BEDTIME
  7. TOPAMAX [Concomitant]
  8. VITAMIN CAP [Concomitant]

REACTIONS (5)
  - GRAND MAL CONVULSION [None]
  - LOSS OF CONSCIOUSNESS [None]
  - SKIN DISCOLOURATION [None]
  - TREMOR [None]
  - URINARY INCONTINENCE [None]
